FAERS Safety Report 4362190-9 (Version None)
Quarter: 2004Q2

REPORT INFORMATION
  Report Type: 
  Country: None (occurrence: None)
  Receive Date: 20040517
  Receipt Date: 20040415
  Transmission Date: 20050107
  Serious: Yes (Other)
  Sender: FDA-Public Use
  Company Number: 2004-03-2505

PATIENT
  Age: 5 Year
  Sex: Male
  Weight: 18.5975 kg

DRUGS (2)
  1. CLARITIN [Suspect]
     Indication: HYPERSENSITIVITY
     Dosage: 1.5 TSP QD ORAL
     Route: 048
     Dates: start: 20040326, end: 20040328
  2. PEDIACARE COUGH-COLD [Concomitant]

REACTIONS (6)
  - ABDOMINAL PAIN [None]
  - AGGRESSION [None]
  - ASTHMA [None]
  - COUGH [None]
  - IRRITABILITY [None]
  - PRURITUS [None]
